FAERS Safety Report 10061615 (Version 1)
Quarter: 2014Q2

REPORT INFORMATION
  Report Type: Spontaneous
  Country: ES (occurrence: ES)
  Receive Date: 20140407
  Receipt Date: 20140407
  Transmission Date: 20141212
  Serious: Yes (Hospitalization)
  Sender: FDA-Public Use
  Company Number: ES-TEVA-473171ISR

PATIENT
  Age: 27 Year
  Sex: Male

DRUGS (12)
  1. MYCOPHENOLATE MOFETIL [Suspect]
     Indication: IMMUNOSUPPRESSANT DRUG THERAPY
     Route: 065
  2. THYMOGLOBULIN [Suspect]
     Indication: IMMUNOSUPPRESSANT DRUG THERAPY
     Dosage: RECEIVED 2 DOSES
     Route: 065
  3. TACROLIMUS [Suspect]
     Indication: IMMUNOSUPPRESSANT DRUG THERAPY
     Dosage: CONTROLLED/EXTENDED-RELEASE
     Route: 065
  4. METHYLPREDNISOLONE [Suspect]
     Indication: IMMUNOSUPPRESSANT DRUG THERAPY
     Dosage: 300MG; THEN 100MG X 4 DOSES
     Route: 065
  5. METHYLPREDNISOLONE [Suspect]
     Indication: IMMUNOSUPPRESSANT DRUG THERAPY
     Dosage: BEFORE UNCLAMPING OF THE PANCREAS
     Route: 065
  6. GANCICLOVIR [Concomitant]
     Indication: INFECTION PROPHYLAXIS
     Route: 065
  7. VANCOMYCIN [Concomitant]
     Indication: INFECTION PROPHYLAXIS
     Route: 065
  8. CEFOTAXIME [Concomitant]
     Indication: INFECTION PROPHYLAXIS
     Route: 065
  9. FLUCONAZOLE [Concomitant]
     Indication: INFECTION PROPHYLAXIS
     Route: 065
  10. COTRIMOXAZOLE [Concomitant]
     Indication: INFECTION PROPHYLAXIS
     Route: 065
  11. UNSPECIFIED ANTIHISTAMINES [Concomitant]
  12. UNSPECIFIED ANTIPYRETICS [Concomitant]

REACTIONS (4)
  - Acute respiratory distress syndrome [Recovering/Resolving]
  - H1N1 influenza [Recovering/Resolving]
  - Hypertension [Unknown]
  - Tachycardia [Unknown]
